FAERS Safety Report 17753931 (Version 1)
Quarter: 2020Q2

REPORT INFORMATION
  Report Type: Spontaneous
  Country: US (occurrence: US)
  Receive Date: 20200506
  Receipt Date: 20200506
  Transmission Date: 20200714
  Serious: No
  Sender: FDA-Public Use
  Company Number: US-ROCHE-2482045

PATIENT
  Sex: Female

DRUGS (8)
  1. ESBRIET [Suspect]
     Active Substance: PIRFENIDONE
     Indication: PULMONARY FIBROSIS
     Route: 048
  2. CALCIUM [Concomitant]
     Active Substance: CALCIUM
  3. CRESTOR [Concomitant]
     Active Substance: ROSUVASTATIN CALCIUM
  4. PREVACID [Concomitant]
     Active Substance: LANSOPRAZOLE
  5. TOPAMAX [Concomitant]
     Active Substance: TOPIRAMATE
  6. FISH OIL [Concomitant]
     Active Substance: FISH OIL
  7. ASPIRIN [ACETYLSALICYLIC ACID] [Concomitant]
     Active Substance: ASPIRIN
  8. ALKA-SELTZER PLUS SINUS ALLERGY [Concomitant]

REACTIONS (1)
  - Feeding disorder [Recovered/Resolved]
